FAERS Safety Report 22637563 (Version 1)
Quarter: 2023Q2

REPORT INFORMATION
  Report Type: Spontaneous
  Country: FR (occurrence: FR)
  Receive Date: 20230626
  Receipt Date: 20230626
  Transmission Date: 20230722
  Serious: Yes (Hospitalization)
  Sender: FDA-Public Use
  Company Number: None

PATIENT
  Age: 68 Year
  Sex: Female
  Weight: 47 kg

DRUGS (7)
  1. AMOXICILLIN [Suspect]
     Active Substance: AMOXICILLIN
     Indication: Lung disorder
     Route: 065
     Dates: start: 20220108, end: 20220115
  2. AZITHROMYCIN [Suspect]
     Active Substance: AZITHROMYCIN
     Indication: Lung disorder
     Route: 065
     Dates: start: 20220108, end: 20220112
  3. CEFPODOXIME [Suspect]
     Active Substance: CEFPODOXIME
     Indication: Lung disorder
     Route: 065
     Dates: start: 20220105, end: 20220108
  4. LEVOFLOXACIN [Suspect]
     Active Substance: LEVOFLOXACIN
     Indication: Lung disorder
     Route: 065
     Dates: start: 20220115, end: 20220120
  5. CEFEPIME [Suspect]
     Active Substance: CEFEPIME HYDROCHLORIDE
     Indication: Lung disorder
     Route: 065
     Dates: start: 20220120, end: 20220120
  6. CLAVULANIC ACID [Suspect]
     Active Substance: CLAVULANIC ACID
     Indication: Lung disorder
     Route: 065
     Dates: start: 20220108, end: 20220115
  7. AZACTAM [Suspect]
     Active Substance: AZTREONAM
     Indication: Lung disorder
     Route: 065
     Dates: start: 20220121, end: 20220123

REACTIONS (1)
  - Clostridium difficile infection [Recovered/Resolved]

NARRATIVE: CASE EVENT DATE: 20220122
